FAERS Safety Report 9885457 (Version 1)
Quarter: 2014Q1

REPORT INFORMATION
  Report Type: Report from Study
  Country: CO (occurrence: CO)
  Receive Date: 20140210
  Receipt Date: 20140210
  Transmission Date: 20141002
  Serious: Yes (Hospitalization)
  Sender: FDA-Public Use
  Company Number: CO-SA-2014SA012599

PATIENT
  Age: 76 Year
  Sex: Male
  Weight: 70 kg

DRUGS (3)
  1. INSULIN GLARGINE [Suspect]
     Indication: DIABETES MELLITUS
     Route: 058
     Dates: start: 201105
  2. LOSARTAN [Concomitant]
     Indication: HYPERTENSION
     Route: 048
  3. ASPIRIN [Concomitant]
     Indication: CORONARY ARTERY DISEASE
     Route: 048

REACTIONS (2)
  - Acute myocardial infarction [Recovering/Resolving]
  - Diabetic foot [Unknown]
